FAERS Safety Report 5939082-4 (Version None)
Quarter: 2008Q4

REPORT INFORMATION
  Report Type: 
  Country: None (occurrence: None)
  Receive Date: 20081103
  Receipt Date: 20081030
  Transmission Date: 20090506
  Serious: Yes (Other)
  Sender: FDA-Public Use
  Company Number: A0754262A

PATIENT
  Age: 17 Year
  Sex: Female

DRUGS (2)
  1. LAMOTRIGINE [Suspect]
     Dosage: 200MG PER DAY
     Route: 048
     Dates: start: 20080820
  2. ABILIFY [Concomitant]

REACTIONS (5)
  - CONVULSION [None]
  - MUSCLE SPASMS [None]
  - MUSCULOSKELETAL STIFFNESS [None]
  - TREMOR [None]
  - VISION BLURRED [None]
